FAERS Safety Report 5050824-5 (Version None)
Quarter: 2006Q3

REPORT INFORMATION
  Report Type: 
  Country: None (occurrence: None)
  Receive Date: 20060710
  Receipt Date: 20060621
  Transmission Date: 20061208
  Serious: Yes (Other)
  Sender: FDA-Public Use
  Company Number: GXKR2006JP03596

PATIENT
  Age: 72 Year
  Sex: Female

DRUGS (3)
  1. RIFAMPICIN [Suspect]
     Indication: GRANULOMA SKIN
  2. ETHAMBUTOL (NGX) (ETHAMBUTOL) [Suspect]
     Indication: GRANULOMA SKIN
  3. ISONIAZID [Suspect]
     Indication: GRANULOMA SKIN

REACTIONS (2)
  - AZOTAEMIA [None]
  - DIALYSIS [None]
